FAERS Safety Report 18835857 (Version 1)
Quarter: 2021Q1

REPORT INFORMATION
  Report Type: Spontaneous
  Country: US (occurrence: US)
  Receive Date: 20210203
  Receipt Date: 20210203
  Transmission Date: 20210419
  Serious: No
  Sender: FDA-Public Use
  Company Number: US-ALLERGAN-2002717US

PATIENT
  Sex: Female

DRUGS (5)
  1. BOTOX [Suspect]
     Active Substance: ONABOTULINUMTOXINA
     Dosage: UNK, SINGLE
  2. BOTOX [Suspect]
     Active Substance: ONABOTULINUMTOXINA
     Indication: MIGRAINE
     Dosage: UNK, SINGLE
     Dates: start: 201910, end: 201910
  3. BOTOX [Suspect]
     Active Substance: ONABOTULINUMTOXINA
     Dosage: UNK, SINGLE
  4. BOTOX [Suspect]
     Active Substance: ONABOTULINUMTOXINA
     Dosage: UNK, SINGLE
  5. BOTOX [Suspect]
     Active Substance: ONABOTULINUMTOXINA
     Dosage: UNK, SINGLE

REACTIONS (12)
  - Hemiplegic migraine [Unknown]
  - Muscle tightness [Unknown]
  - Aura [Unknown]
  - Migraine [Unknown]
  - Arthralgia [Unknown]
  - Paraesthesia [Unknown]
  - Injection site pain [Unknown]
  - Neck pain [Unknown]
  - Cerebrospinal fluid leakage [Recovered/Resolved]
  - Therapeutic response decreased [Unknown]
  - Feeling abnormal [Unknown]
  - Hyperaesthesia [Unknown]
